FAERS Safety Report 10734575 (Version 2)
Quarter: 2015Q1

REPORT INFORMATION
  Report Type: Spontaneous
  Country: US (occurrence: US)
  Receive Date: 20150123
  Receipt Date: 20150130
  Transmission Date: 20150721
  Serious: Yes (Death, Other)
  Sender: FDA-Public Use
  Company Number: US-B.I. PHARMACEUTICALS,INC./RIDGEFIELD-2015-BI-03719BP

PATIENT
  Age: 70 Year
  Sex: Male
  Weight: 86.18 kg

DRUGS (1)
  1. SPIRIVA [Suspect]
     Active Substance: TIOTROPIUM BROMIDE MONOHYDRATE
     Indication: CHRONIC OBSTRUCTIVE PULMONARY DISEASE
     Route: 055
     Dates: start: 2013, end: 2014

REACTIONS (5)
  - Diarrhoea [Unknown]
  - Abdominal pain upper [Unknown]
  - Feeling cold [Unknown]
  - Death [Fatal]
  - Vomiting [Unknown]

NARRATIVE: CASE EVENT DATE: 20140819
